FAERS Safety Report 9038580 (Version 1)
Quarter: 2013Q1

REPORT INFORMATION
  Report Type: Spontaneous
  Country: CN (occurrence: CN)
  Receive Date: 20130129
  Receipt Date: 20130129
  Transmission Date: 20140127
  Serious: Yes (Other)
  Sender: FDA-Public Use
  Company Number: PHHY2012CN126354

PATIENT
  Age: 52 Year
  Sex: Male
  Weight: 65 kg

DRUGS (2)
  1. TEGRETOL [Suspect]
     Indication: NEURALGIA
     Dosage: 0.05 G, TID
     Route: 048
     Dates: start: 20100222, end: 20100308
  2. TEGRETOL [Suspect]
     Dosage: 0.1 G, TID
     Route: 048
     Dates: start: 20100308, end: 20100319

REACTIONS (4)
  - Swelling face [Recovering/Resolving]
  - Rash [Recovering/Resolving]
  - Skin exfoliation [Recovering/Resolving]
  - Pruritus [Recovering/Resolving]
